FAERS Safety Report 10448772 (Version 1)
Quarter: 2014Q3

REPORT INFORMATION
  Report Type: Spontaneous
  Country: BR (occurrence: BR)
  Receive Date: 20140912
  Receipt Date: 20140912
  Transmission Date: 20150326
  Serious: Yes (Other)
  Sender: FDA-Public Use
  Company Number: BR-PFIZER INC-2014249968

PATIENT
  Age: 76 Year
  Sex: Female
  Weight: 51 kg

DRUGS (3)
  1. CALCIUM [Concomitant]
     Active Substance: CALCIUM
     Indication: OSTEOPOROSIS
     Dosage: 1 TABLET (NO FREQUENCY SPECIFIED)
     Dates: start: 2012
  2. CHLORTHALIDONE. [Concomitant]
     Active Substance: CHLORTHALIDONE
     Indication: HYPERTENSION
     Dosage: UNK
     Dates: start: 2011
  3. DETRUSITOL LA [Suspect]
     Active Substance: TOLTERODINE TARTRATE
     Dosage: 1 TABLET (STRENGTH 4 MG), DAILY
     Route: 048
     Dates: start: 201406, end: 2014

REACTIONS (1)
  - Bladder disorder [Unknown]
